FAERS Safety Report 6912700-X (Version None)
Quarter: 2010Q3

REPORT INFORMATION
  Report Type: 
  Country: None (occurrence: None)
  Receive Date: 20100806
  Receipt Date: 20081003
  Transmission Date: 20110219
  Serious: Yes (Other)
  Sender: FDA-Public Use
  Company Number: US-PFIZER INC-2007087590

PATIENT
  Sex: Female
  Weight: 61 kg

DRUGS (4)
  1. DILANTIN [Suspect]
     Indication: CONVULSION
     Route: 048
     Dates: start: 19770101
  2. DILANTIN [Suspect]
     Indication: CONVULSION
     Dates: start: 20080201
  3. ASPARTAME [Suspect]
  4. TOPAMAX [Suspect]
     Indication: CONVULSION
     Dates: start: 20000101, end: 20000101

REACTIONS (19)
  - ABDOMINAL PAIN UPPER [None]
  - ACTIVITIES OF DAILY LIVING IMPAIRED [None]
  - AURA [None]
  - CONVULSION [None]
  - DISORIENTATION [None]
  - DRUG INEFFECTIVE [None]
  - EMOTIONAL DISTRESS [None]
  - FEELING ABNORMAL [None]
  - GLAUCOMA [None]
  - HEADACHE [None]
  - MEDICATION ERROR [None]
  - PAIN [None]
  - PALPITATIONS [None]
  - PSYCHOTIC DISORDER [None]
  - ROAD TRAFFIC ACCIDENT [None]
  - THINKING ABNORMAL [None]
  - THIRST [None]
  - URINARY TRACT INFECTION [None]
  - VISION BLURRED [None]
